FAERS Safety Report 11979762 (Version 1)
Quarter: 2016Q1

REPORT INFORMATION
  Report Type: Spontaneous
  Country: US (occurrence: None)
  Receive Date: 20160129
  Receipt Date: 20160129
  Transmission Date: 20160526
  Serious: Yes (Hospitalization, Other)
  Sender: FDA-Public Use
  Company Number: US-MDT-ADR-2016-00121

PATIENT
  Age: 25 Year
  Sex: Male

DRUGS (2)
  1. LAMICTAL [Suspect]
     Active Substance: LAMOTRIGINE
  2. BACLOFEN INTRATHECAL (4000 MCG/ML) [Suspect]
     Active Substance: BACLOFEN
     Indication: MUSCLE SPASTICITY
     Dosage: 629 MCG/DAY

REACTIONS (7)
  - Pyrexia [None]
  - Systemic inflammatory response syndrome [None]
  - Viral infection [None]
  - Asthenia [None]
  - Malaise [None]
  - Pain [None]
  - Rhabdomyolysis [None]
